FAERS Safety Report 10377617 (Version 1)
Quarter: 2014Q1

REPORT INFORMATION
  Report Type: Spontaneous
  Country: US (occurrence: None)
  Receive Date: 20140306
  Receipt Date: 20140306
  Transmission Date: 20141002
  Serious: Yes (Other)
  Sender: FDA-Public Use
  Company Number: 163-21880-13032138

PATIENT
  Age: 65 Year
  Sex: Male

DRUGS (4)
  1. REVLIMID (LENALIDOMIDE) (15 MILLIGRAM, CAPSULES) [Suspect]
     Indication: CHRONIC LYMPHOCYTIC LEUKAEMIA
     Route: 048
     Dates: start: 20130211, end: 20130303
  2. REVLIMID (LENALIDOMIDE) (15 MILLIGRAM, CAPSULES) [Suspect]
     Indication: LYMPHOCYTIC LYMPHOMA
     Route: 048
     Dates: start: 20130211, end: 20130303
  3. ASA (ACETYLSALICYLIC ACID) (UNKNOWN) [Concomitant]
  4. EVEROLIMUS (EVEROLIMUS) (UNKNOWN) [Concomitant]

REACTIONS (1)
  - Neutropenia [None]
